FAERS Safety Report 16607936 (Version 1)
Quarter: 2020Q3

REPORT INFORMATION
  Report Type: Spontaneous
  Country: US (occurrence: US)
  Receive Date: 20190722
  Receipt Date: 20190722
  Transmission Date: 20201104
  Serious: Yes (Life-Threatening, Hospitalization, Other)
  Sender: FDA-Public Use
  Company Number: US-DRREDDYS-USA/USA/19/0112195

PATIENT
  Age: 74 Year
  Sex: Female

DRUGS (19)
  1. IBUPROFEN. [Suspect]
     Active Substance: IBUPROFEN
     Indication: VERTEBRAL FORAMINAL STENOSIS
  2. SODIUM CHLORIDE. [Concomitant]
     Active Substance: SODIUM CHLORIDE
     Indication: VERTEBRAL FORAMINAL STENOSIS
  3. CETIRIZINE [Concomitant]
     Active Substance: CETIRIZINE HYDROCHLORIDE
     Indication: PRODUCT USED FOR UNKNOWN INDICATION
  4. CALCIUM CARBONATE 1.25 G, VITAMIN D2 200 U [Concomitant]
     Indication: VITAMIN SUPPLEMENTATION
     Dosage: 1250 MG
  5. DEXAMETHASONE. [Suspect]
     Active Substance: DEXAMETHASONE
     Indication: SPINAL OSTEOARTHRITIS
  6. ATORVASTATIN [Concomitant]
     Active Substance: ATORVASTATIN
     Indication: PRODUCT USED FOR UNKNOWN INDICATION
  7. PREGABALIN. [Concomitant]
     Active Substance: PREGABALIN
     Indication: VERTEBRAL FORAMINAL STENOSIS
  8. PREGABALIN. [Concomitant]
     Active Substance: PREGABALIN
     Indication: SPINAL OSTEOARTHRITIS
  9. CARBIDOPA 25 MG, LEVODOPA 100 MG [Concomitant]
     Active Substance: CARBIDOPA\LEVODOPA
     Indication: PRODUCT USED FOR UNKNOWN INDICATION
     Dosage: 25 MG/100 MG
     Route: 065
  10. OMNIPAQUE [Concomitant]
     Active Substance: IOHEXOL
     Indication: PRODUCT USED FOR UNKNOWN INDICATION
  11. DEXAMETHASONE. [Suspect]
     Active Substance: DEXAMETHASONE
     Indication: VERTEBRAL FORAMINAL STENOSIS
     Dosage: INTERLAMINAR ILESI AT THE C7?T1 VERTEBRAL SPACE
     Route: 008
  12. LIDOCAINE. [Concomitant]
     Active Substance: LIDOCAINE
     Indication: VERTEBRAL FORAMINAL STENOSIS
     Dosage: AN INTERLAMINAR ILESI AT THE C7?T1 VERTEBRAL SPACE
     Route: 008
  13. IBUPROFEN. [Suspect]
     Active Substance: IBUPROFEN
     Indication: SPINAL OSTEOARTHRITIS
     Dosage: TWICE DAILY
     Route: 065
  14. KRILL OIL [Suspect]
     Active Substance: DIETARY SUPPLEMENT\KRILL OIL
     Indication: PRODUCT USED FOR UNKNOWN INDICATION
  15. LIDOCAINE. [Concomitant]
     Active Substance: LIDOCAINE
     Indication: SPINAL OSTEOARTHRITIS
     Dosage: INJECTED 5 MM LEFT OF MIDLINE IN THE C7?T1 INTERSPACE
     Route: 058
  16. SODIUM CHLORIDE. [Concomitant]
     Active Substance: SODIUM CHLORIDE
     Indication: SPINAL OSTEOARTHRITIS
     Dosage: INTERLAMINAR ILESI AT THE C7?T1 VERTEBRAL SPACE
     Route: 008
  17. LOSARTAN. [Concomitant]
     Active Substance: LOSARTAN
     Indication: PRODUCT USED FOR UNKNOWN INDICATION
  18. MULTIVITAMIN [Concomitant]
     Active Substance: VITAMINS
     Indication: VITAMIN SUPPLEMENTATION
  19. SELEGILINE [Concomitant]
     Active Substance: SELEGILINE
     Indication: PRODUCT USED FOR UNKNOWN INDICATION

REACTIONS (5)
  - Injection site pain [Recovered/Resolved]
  - Dysuria [Recovered/Resolved]
  - Nuchal rigidity [Recovered/Resolved]
  - Joint stiffness [Recovered/Resolved]
  - Spinal epidural haematoma [Recovered/Resolved]
